FAERS Safety Report 20064132 (Version 1)
Quarter: 2021Q4

REPORT INFORMATION
  Report Type: Spontaneous
  Country: US (occurrence: None)
  Receive Date: 20211112
  Receipt Date: 20211112
  Transmission Date: 20220304
  Serious: No
  Sender: FDA-Public Use
  Company Number: None

PATIENT
  Age: 55 Year
  Sex: Female
  Weight: 60.78 kg

DRUGS (2)
  1. CANNABIS SATIVA FLOWERING TOP [Suspect]
     Active Substance: CANNABIS SATIVA FLOWERING TOP
     Indication: Nutritional supplement allergy
     Route: 048
     Dates: end: 20211023
  2. NP THYROID [Concomitant]
     Active Substance: LEVOTHYROXINE\LIOTHYRONINE

REACTIONS (5)
  - Malaise [None]
  - Dizziness [None]
  - Nausea [None]
  - Chest discomfort [None]
  - Dry mouth [None]

NARRATIVE: CASE EVENT DATE: 20211023
